FAERS Safety Report 24524958 (Version 1)
Quarter: 2024Q4

REPORT INFORMATION
  Report Type: Spontaneous
  Country: GB (occurrence: GB)
  Receive Date: 20241019
  Receipt Date: 20241019
  Transmission Date: 20250115
  Serious: Yes (Other)
  Sender: SANDOZ
  Company Number: GB-MHRA-MED-202306261208320520-TCDJB

PATIENT
  Age: 53 Year
  Sex: Female
  Weight: 62 kg

DRUGS (18)
  1. CLARITHROMYCIN [Suspect]
     Active Substance: CLARITHROMYCIN
     Indication: Infected bite
     Dosage: 500 MG, BID
     Route: 065
     Dates: start: 20230619, end: 20230624
  2. CALCIUM CARBONATE\CHOLECALCIFEROL [Concomitant]
     Active Substance: CALCIUM CARBONATE\CHOLECALCIFEROL
     Indication: Product used for unknown indication
     Dosage: UNK (CALCIUM CARBONATE STRENGTH: 600 MG)
     Route: 065
     Dates: start: 20090603
  3. FOLIC ACID [Concomitant]
     Active Substance: FOLIC ACID
     Indication: Product used for unknown indication
     Dosage: TO ACCOMPANY METHOTREXATE (STRENGTH: 2.5 MG)
     Route: 065
     Dates: start: 20090603
  4. FOLIC ACID [Concomitant]
     Active Substance: FOLIC ACID
     Dosage: TO ACCOMPANY METHOTREXATE (STRENGTH: 5 MG)
     Route: 065
  5. LEVONORGESTREL [Concomitant]
     Active Substance: LEVONORGESTREL
     Indication: Product used for unknown indication
     Dosage: UNK (RENEWAL)
     Route: 065
     Dates: start: 20191218
  6. METHOTREXATE [Concomitant]
     Active Substance: METHOTREXATE
     Indication: Sarcoidosis
     Dosage: 5 MG (STRENGTH: 7.5MG)
     Route: 065
     Dates: start: 20090603
  7. METHOTREXATE [Concomitant]
     Active Substance: METHOTREXATE
     Dosage: UNK (STRENGTH: 10 MG)
     Route: 065
  8. METHOTREXATE [Concomitant]
     Active Substance: METHOTREXATE
     Dosage: UNK (STRENGTH: 10 MG)
     Route: 065
  9. METHOTREXATE [Concomitant]
     Active Substance: METHOTREXATE
     Dosage: UNK (STRENGTH: 12.5 MG)
     Route: 065
  10. METHOTREXATE [Concomitant]
     Active Substance: METHOTREXATE
     Dosage: UNK (STRENGTH: 15 MG)
     Route: 065
  11. METHOTREXATE [Concomitant]
     Active Substance: METHOTREXATE
     Dosage: UNK (STRENGTH: 2.5MG)
     Route: 065
  12. METHOTREXATE [Concomitant]
     Active Substance: METHOTREXATE
     Dosage: UNK (STRENGTH: 20 MG)
     Route: 065
  13. METHOTREXATE [Concomitant]
     Active Substance: METHOTREXATE
     Dosage: UNK (STRENGTH: 25 MG/ML)
     Route: 065
  14. METHOTREXATE [Concomitant]
     Active Substance: METHOTREXATE
     Dosage: UNK (STRENGTH: 2MG/ML)
     Route: 065
  15. METHOTREXATE [Concomitant]
     Active Substance: METHOTREXATE
     Dosage: UNK (STRENGTH: 50 MG)
     Route: 065
  16. ESTRADIOL [Concomitant]
     Active Substance: ESTRADIOL
     Indication: Menopausal symptoms
     Dosage: UNK
     Route: 065
     Dates: start: 20220420
  17. UTROGESTAN [Concomitant]
     Active Substance: PROGESTERONE
     Dosage: UNK (STRENGTH: 100MG)
     Route: 065
  18. UTROGESTAN [Concomitant]
     Active Substance: PROGESTERONE
     Indication: Menopausal symptoms
     Dosage: UNK (STRENGTH: 200MG)
     Route: 065
     Dates: start: 20220420

REACTIONS (2)
  - Mania [Recovering/Resolving]
  - Insomnia [Unknown]
